FAERS Safety Report 13033245 (Version 11)
Quarter: 2017Q4

REPORT INFORMATION
  Report Type: Spontaneous
  Country: CA (occurrence: CA)
  Receive Date: 20161216
  Receipt Date: 20171025
  Transmission Date: 20180320
  Serious: Yes (Hospitalization, Other)
  Sender: FDA-Public Use
  Company Number: CA-ROCHE-1867464

PATIENT
  Age: 36 Year
  Sex: Female

DRUGS (15)
  1. XOLAIR [Suspect]
     Active Substance: OMALIZUMAB
     Indication: ASTHMA
     Route: 058
     Dates: start: 20161111
  2. XOLAIR [Suspect]
     Active Substance: OMALIZUMAB
     Route: 058
     Dates: start: 20170608
  3. ZENHALE [Concomitant]
     Active Substance: FORMOTEROL FUMARATE\MOMETASONE FUROATE
     Indication: PRODUCT USED FOR UNKNOWN INDICATION
     Dosage: STRENGTH 2 IHL
     Route: 065
  4. XOLAIR [Suspect]
     Active Substance: OMALIZUMAB
     Route: 058
     Dates: start: 20170117, end: 20170117
  5. XOLAIR [Suspect]
     Active Substance: OMALIZUMAB
     Route: 058
     Dates: start: 20170622
  6. XOLAIR [Suspect]
     Active Substance: OMALIZUMAB
     Route: 058
     Dates: start: 20170201
  7. XOLAIR [Suspect]
     Active Substance: OMALIZUMAB
     Route: 058
     Dates: start: 20170427
  8. XOLAIR [Suspect]
     Active Substance: OMALIZUMAB
     Route: 058
     Dates: start: 20170706
  9. XOLAIR [Suspect]
     Active Substance: OMALIZUMAB
     Route: 058
     Dates: start: 20170302
  10. XOLAIR [Suspect]
     Active Substance: OMALIZUMAB
     Route: 058
     Dates: start: 20170329
  11. XOLAIR [Suspect]
     Active Substance: OMALIZUMAB
     Route: 058
     Dates: start: 20161122
  12. XOLAIR [Suspect]
     Active Substance: OMALIZUMAB
     Route: 058
     Dates: start: 20161206
  13. SINGULAIR [Concomitant]
     Active Substance: MONTELUKAST SODIUM
     Indication: PRODUCT USED FOR UNKNOWN INDICATION
     Route: 065
  14. XOLAIR [Suspect]
     Active Substance: OMALIZUMAB
     Route: 058
     Dates: start: 20170320
  15. XOLAIR [Suspect]
     Active Substance: OMALIZUMAB
     Route: 058
     Dates: start: 20170413

REACTIONS (21)
  - Pyrexia [Unknown]
  - Cough [Unknown]
  - Throat tightness [Recovered/Resolved]
  - Injection site pain [Recovered/Resolved]
  - Body temperature decreased [Unknown]
  - Drug ineffective [Unknown]
  - Abdominal pain [Recovering/Resolving]
  - Chills [Recovering/Resolving]
  - Fatigue [Not Recovered/Not Resolved]
  - Respiratory tract infection [Recovering/Resolving]
  - Dyspnoea [Recovering/Resolving]
  - Nasal discharge discolouration [Not Recovered/Not Resolved]
  - Asthma [Recovering/Resolving]
  - Blood pressure increased [Unknown]
  - Increased upper airway secretion [Unknown]
  - Productive cough [Unknown]
  - Sputum discoloured [Unknown]
  - Throat irritation [Recovered/Resolved]
  - Rash pruritic [Unknown]
  - Headache [Unknown]
  - Stress [Unknown]

NARRATIVE: CASE EVENT DATE: 20161111
